FAERS Safety Report 23795931 (Version 1)
Quarter: 2024Q2

REPORT INFORMATION
  Report Type: Spontaneous
  Country: US (occurrence: US)
  Receive Date: 20240429
  Receipt Date: 20240429
  Transmission Date: 20240716
  Serious: No
  Sender: FDA-Public Use
  Company Number: US-BIOGEN-2024BI01249699

PATIENT
  Age: 49 Year
  Sex: Female

DRUGS (8)
  1. AVONEX [Suspect]
     Active Substance: INTERFERON BETA-1A
     Indication: Multiple sclerosis
     Route: 050
     Dates: start: 20240201
  2. AVONEX [Suspect]
     Active Substance: INTERFERON BETA-1A
     Route: 050
     Dates: start: 202402
  3. AVONEX [Suspect]
     Active Substance: INTERFERON BETA-1A
     Route: 050
     Dates: start: 20240215
  4. AVONEX [Suspect]
     Active Substance: INTERFERON BETA-1A
     Route: 050
     Dates: start: 20240222
  5. IBUPROFEN [Concomitant]
     Active Substance: IBUPROFEN
     Route: 050
  6. ZYRTEC [Concomitant]
     Active Substance: CETIRIZINE HYDROCHLORIDE
     Route: 050
  7. XYZAL ALLERGY 24HR [Concomitant]
     Active Substance: LEVOCETIRIZINE DIHYDROCHLORIDE
     Route: 050
  8. IBUPROFEN [Concomitant]
     Active Substance: IBUPROFEN
     Route: 050

REACTIONS (4)
  - Injection site rash [Recovered/Resolved]
  - Influenza like illness [Not Recovered/Not Resolved]
  - Headache [Recovered/Resolved]
  - Nausea [Unknown]

NARRATIVE: CASE EVENT DATE: 20240201
